FAERS Safety Report 6054376-2 (Version None)
Quarter: 2009Q1

REPORT INFORMATION
  Report Type: 
  Country: None (occurrence: None)
  Receive Date: 20090123
  Receipt Date: 20090123
  Transmission Date: 20090719
  Serious: No
  Sender: FDA-Public Use
  Company Number: None

PATIENT

DRUGS (5)
  1. CIPRO [Suspect]
     Indication: EPIDIDYMITIS
     Dosage: 500 MG 2X DAILY PO
     Route: 048
     Dates: start: 20080201, end: 20080301
  2. .. [Concomitant]
  3. .. [Concomitant]
  4. .. [Concomitant]
  5. .. [Concomitant]

REACTIONS (4)
  - ABASIA [None]
  - ASTHENIA [None]
  - NEUROPATHY PERIPHERAL [None]
  - TENDONITIS [None]
